FAERS Safety Report 24380478 (Version 1)
Quarter: 2024Q3

REPORT INFORMATION
  Report Type: Spontaneous
  Country: US (occurrence: US)
  Receive Date: 20240930
  Receipt Date: 20240930
  Transmission Date: 20241017
  Serious: No
  Sender: SANOFI AVENTIS
  Company Number: US-SA-2024SA275474

PATIENT
  Age: 3 Year
  Sex: Male

DRUGS (4)
  1. DUPIXENT [Suspect]
     Active Substance: DUPILUMAB
     Indication: Drug therapy
     Dosage: 300MG SUBCUTANEOUSLY EVERY 4 WEEKS
     Route: 058
  2. CETIRIZINE [Concomitant]
     Active Substance: CETIRIZINE HYDROCHLORIDE
     Dosage: UNK
  3. CLARITIN [Concomitant]
     Active Substance: LORATADINE
  4. OXYTOCIN [Concomitant]
     Active Substance: OXYTOCIN

REACTIONS (4)
  - Otorrhoea [Not Recovered/Not Resolved]
  - Pruritus [Not Recovered/Not Resolved]
  - Dry skin [Not Recovered/Not Resolved]
  - Pityriasis alba [Not Recovered/Not Resolved]

NARRATIVE: CASE EVENT DATE: 20240701
